FAERS Safety Report 6744251-X (Version None)
Quarter: 2010Q2

REPORT INFORMATION
  Report Type: 
  Country: None (occurrence: None)
  Receive Date: 20100527
  Receipt Date: 20100518
  Transmission Date: 20101027
  Serious: Yes (Other)
  Sender: FDA-Public Use
  Company Number: CA-SANOFI-AVENTIS-2010SA028759

PATIENT
  Age: 65 Year
  Sex: Male
  Weight: 76.7 kg

DRUGS (10)
  1. OXALIPLATIN [Suspect]
     Route: 041
     Dates: start: 20090805, end: 20090805
  2. OXALIPLATIN [Suspect]
     Route: 041
     Dates: start: 20100505, end: 20100505
  3. INVESTIGATIONAL DRUG [Suspect]
     Route: 042
     Dates: start: 20090805, end: 20100505
  4. FLUOROURACIL [Suspect]
     Route: 041
     Dates: start: 20090805, end: 20100421
  5. FOLINIC ACID [Suspect]
     Route: 042
     Dates: start: 20090805, end: 20100505
  6. ATORVASTATIN CALCIUM [Concomitant]
     Dates: start: 20010101
  7. LOPRESSOR [Concomitant]
     Dates: start: 20010101
  8. ASPIRIN [Concomitant]
     Dates: start: 20050101
  9. IMOVANE [Concomitant]
     Dates: start: 20070903
  10. TYLENOL (CAPLET) [Concomitant]
     Dates: start: 20100413

REACTIONS (2)
  - HYPOXIA [None]
  - TREMOR [None]
